FAERS Safety Report 8244175-5 (Version None)
Quarter: 2012Q1

REPORT INFORMATION
  Report Type: 
  Country: None (occurrence: None)
  Receive Date: 20120309
  Receipt Date: 20101105
  Transmission Date: 20120608
  Serious: Yes (Other)
  Sender: FDA-Public Use
  Company Number: PHHY2010US65840

PATIENT
  Age: 38 Year
  Sex: Female

DRUGS (5)
  1. GABAPENTIN [Concomitant]
  2. CYMBALTA [Concomitant]
  3. BACLOFEN [Concomitant]
  4. LOTREL [Concomitant]
  5. EXTAVIA [Suspect]
     Indication: MULTIPLE SCLEROSIS
     Dosage: 0.25 MG, QOD, SUBCUTANEOUS; 0.3 MG VIAL, 125, QOD; 0.24 MG (1 ML), QOD, SUBCUTANEOUS
     Route: 058
     Dates: start: 20100925

REACTIONS (24)
  - NECK PAIN [None]
  - NAUSEA [None]
  - INJECTION SITE MASS [None]
  - INJECTION SITE HAEMATOMA [None]
  - INJECTION SITE ERYTHEMA [None]
  - STARING [None]
  - BACK PAIN [None]
  - DECREASED APPETITE [None]
  - INJECTION SITE REACTION [None]
  - INJECTION SITE PAIN [None]
  - DYSPNOEA [None]
  - FRUSTRATION [None]
  - HYPERHIDROSIS [None]
  - CONVULSION [None]
  - ASTHENIA [None]
  - DEPRESSION [None]
  - PYREXIA [None]
  - MUSCLE SPASMS [None]
  - HEADACHE [None]
  - FATIGUE [None]
  - INFLUENZA [None]
  - MYALGIA [None]
  - ABDOMINAL PAIN UPPER [None]
  - DYSKINESIA [None]
